FAERS Safety Report 13592523 (Version 1)
Quarter: 2017Q2

REPORT INFORMATION
  Report Type: Spontaneous
  Country: US (occurrence: US)
  Receive Date: 20170530
  Receipt Date: 20170530
  Transmission Date: 20170830
  Serious: No
  Sender: FDA-Public Use
  Company Number: US-B.I. PHARMACEUTICALS,INC./RIDGEFIELD-2017-BI-029084

PATIENT
  Age: 64 Year
  Sex: Male

DRUGS (9)
  1. PERCOCET [Concomitant]
     Active Substance: ACETAMINOPHEN\OXYCODONE HYDROCHLORIDE
     Indication: BACK PAIN
  2. SYMBICORT [Concomitant]
     Active Substance: BUDESONIDE\FORMOTEROL FUMARATE DIHYDRATE
     Indication: CHRONIC OBSTRUCTIVE PULMONARY DISEASE
     Dosage: ONE TWICE A DAY;  FORM STRENGTH: 160/4.5 MCG
     Route: 055
  3. BUTRANS [Concomitant]
     Active Substance: BUPRENORPHINE
     Indication: MUSCULOSKELETAL PAIN
  4. GABAPENTIN. [Concomitant]
     Active Substance: GABAPENTIN
     Indication: NEURALGIA
     Dosage: ONE CAPSULE FOUR TIMES A DAY;  FORM STRENGTH: 600 MG; FORMULATION: CAPSULE
     Route: 048
  5. PERCOCET [Concomitant]
     Active Substance: ACETAMINOPHEN\OXYCODONE HYDROCHLORIDE
     Indication: MUSCULOSKELETAL PAIN
  6. DULOXETINE. [Concomitant]
     Active Substance: DULOXETINE
     Indication: NEURALGIA
     Dosage: ONE TABLET TWICE A DAY;  FORM STRENGTH: 30 MG; FORMULATION: TABLET
     Route: 048
  7. COMBIVENT [Suspect]
     Active Substance: ALBUTEROL SULFATE\IPRATROPIUM BROMIDE
     Indication: CHRONIC OBSTRUCTIVE PULMONARY DISEASE
     Dosage: TWO PUFFS TWICE A DAY;  FORM STRENGTH: 20 MCG / 100 MCG; FORMULATION: INHALATION SPRAY? ADMINISTRATI
     Route: 055
     Dates: start: 2012, end: 20170502
  8. BUTRANS [Concomitant]
     Active Substance: BUPRENORPHINE
     Indication: BACK PAIN
     Dosage: ONE PATCH A WEEK;  FORM STRENGTH: 20 MCG; FORMULATION: PATCH
     Route: 061
  9. PERCOCET [Concomitant]
     Active Substance: ACETAMINOPHEN\OXYCODONE HYDROCHLORIDE
     Indication: PAIN IN EXTREMITY
     Dosage: ONE TABLET FOUR TIMES A DAY AS NEEDED;  FORM STRENGTH: 7.5 MG/325 MG; FORMULATION: TABLET
     Route: 048

REACTIONS (1)
  - Asthma [Not Recovered/Not Resolved]

NARRATIVE: CASE EVENT DATE: 20170509
